FAERS Safety Report 23186107 (Version 1)
Quarter: 2023Q4

REPORT INFORMATION
  Report Type: Spontaneous
  Country: US (occurrence: None)
  Receive Date: 20231114
  Receipt Date: 20231114
  Transmission Date: 20240109
  Serious: Yes (unspecified)
  Sender: FDA-Public Use
  Company Number: None

PATIENT
  Age: 62 Year
  Sex: Female

DRUGS (1)
  1. XELJANZ XR [Suspect]
     Active Substance: TOFACITINIB CITRATE
     Dosage: FREQUENCY : DAILY;?
     Route: 048

REACTIONS (6)
  - Neck pain [None]
  - Pain in jaw [None]
  - Cardiac disorder [None]
  - Blood pressure increased [None]
  - Chest discomfort [None]
  - Electrocardiogram abnormal [None]
